FAERS Safety Report 7219085-2 (Version None)
Quarter: 2011Q1

REPORT INFORMATION
  Report Type: 
  Country: None (occurrence: None)
  Receive Date: 20110111
  Receipt Date: 20110106
  Transmission Date: 20110831
  Serious: No
  Sender: FDA-Public Use
  Company Number: US-BIOGENIDEC-2011BI000916

PATIENT
  Sex: Female

DRUGS (1)
  1. AVONEX [Suspect]
     Indication: MULTIPLE SCLEROSIS
     Route: 030
     Dates: start: 20030223

REACTIONS (5)
  - LIVER DISORDER [None]
  - ANXIETY [None]
  - CHEST PAIN [None]
  - STRESS [None]
  - TEARFULNESS [None]
